APPROVED DRUG PRODUCT: YUPELRI
Active Ingredient: REVEFENACIN
Strength: 175MCG/3ML
Dosage Form/Route: SOLUTION;INHALATION
Application: N210598 | Product #001
Applicant: MYLAN IRELAND LTD
Approved: Nov 9, 2018 | RLD: Yes | RS: Yes | Type: RX

PATENTS:
Patent 11484531 | Expires: Oct 23, 2039
Patent 12285417 | Expires: Aug 29, 2039
Patent 12048692 | Expires: Aug 29, 2039
Patent 11008289 | Expires: Jul 14, 2030
Patent 11858898 | Expires: Jul 14, 2030
Patent 10550081 | Expires: Jul 14, 2030
Patent 9765028 | Expires: Jul 14, 2030
Patent 8541451 | Expires: Aug 25, 2031
Patent 11691948 | Expires: Jul 14, 2030
Patent 7288657 | Expires: Oct 31, 2028